FAERS Safety Report 6033052-6 (Version None)
Quarter: 2009Q1

REPORT INFORMATION
  Report Type: 
  Country: None (occurrence: None)
  Receive Date: 20090107
  Receipt Date: 20081231
  Transmission Date: 20090719
  Serious: Yes (Hospitalization)
  Sender: FDA-Public Use
  Company Number: APP200801253

PATIENT
  Sex: 0

DRUGS (7)
  1. HEPARIN SODIUM INJECTION [Suspect]
     Indication: HAEMODIALYSIS
     Dosage: 5000 USP UNITS PER CENTRAL LINE DUAL LUMEN
     Dates: start: 20081209, end: 20081219
  2. HEPARIN SODIUM INJECTION [Suspect]
     Indication: ANTICOAGULANT THERAPY
     Dosage: 3000 USP UNITS, BOLUS, INTRAVENOUS BLOUS, 1000 USP UNITS, HOURLY DURING 4 HR 15 MIN HEMODIALYSIS
     Route: 040
     Dates: start: 20081209, end: 20081219
  3. HEPARIN SODIUM INJECTION [Suspect]
     Indication: HAEMODIALYSIS
     Dosage: 3000 USP UNITS, BOLUS, INTRAVENOUS BLOUS, 1000 USP UNITS, HOURLY DURING 4 HR 15 MIN HEMODIALYSIS
     Route: 040
     Dates: start: 20081209, end: 20081219
  4. HEPARIN SODIUM INJECTION [Suspect]
     Indication: ANTICOAGULANT THERAPY
     Dosage: 3000 USP UNITS, BOLUS, INTRAVENOUS BLOUS, 1000 USP UNITS, HOURLY DURING 4 HR 15 MIN HEMODIALYSIS
     Route: 040
     Dates: start: 20081209, end: 20081219
  5. HEPARIN SODIUM INJECTION [Suspect]
     Indication: HAEMODIALYSIS
     Dosage: 3000 USP UNITS, BOLUS, INTRAVENOUS BLOUS, 1000 USP UNITS, HOURLY DURING 4 HR 15 MIN HEMODIALYSIS
     Route: 040
     Dates: start: 20081209, end: 20081219
  6. HYDROXYUREA [Concomitant]
     Indication: HAEMODIALYSIS
  7. CLONIDINE [Concomitant]

REACTIONS (4)
  - COUGH [None]
  - HAEMORRHAGE [None]
  - PROTHROMBIN TIME PROLONGED [None]
  - PULMONARY HAEMORRHAGE [None]
